FAERS Safety Report 11460036 (Version 3)
Quarter: 2015Q4

REPORT INFORMATION
  Report Type: Spontaneous
  Country: US (occurrence: US)
  Receive Date: 20150904
  Receipt Date: 20151124
  Transmission Date: 20160304
  Serious: Yes (Life-Threatening, Hospitalization, Other)
  Sender: FDA-Public Use
  Company Number: US-APOTEX-2015AP012369

PATIENT
  Sex: Male

DRUGS (11)
  1. ZOLOFT [Suspect]
     Active Substance: SERTRALINE HYDROCHLORIDE
     Indication: DEPRESSION
  2. NEURONTIN [Suspect]
     Active Substance: GABAPENTIN
     Indication: NERVOUSNESS
     Dosage: UNK
     Route: 065
     Dates: start: 2003, end: 2003
  3. PAXIL [Suspect]
     Active Substance: PAROXETINE HYDROCHLORIDE
     Indication: DEPRESSION
     Dosage: UNK
  4. ZOLOFT [Suspect]
     Active Substance: SERTRALINE HYDROCHLORIDE
     Indication: MANIA
     Dosage: UNK
     Route: 065
     Dates: start: 1980
  5. THORAZINE [Suspect]
     Active Substance: CHLORPROMAZINE
     Indication: PRODUCT USED FOR UNKNOWN INDICATION
     Dosage: UNK
     Route: 065
  6. VALPROIC ACID. [Suspect]
     Active Substance: VALPROIC ACID
     Indication: MANIA
     Dosage: UNK
     Route: 065
     Dates: start: 1994
  7. LITHIUM CARBONATE. [Suspect]
     Active Substance: LITHIUM CARBONATE
     Indication: MANIA
     Dosage: 600 MG, BID
     Route: 065
     Dates: start: 1972, end: 2000
  8. HALDOL [Suspect]
     Active Substance: HALOPERIDOL
     Indication: PRODUCT USED FOR UNKNOWN INDICATION
     Dosage: UNK
     Route: 065
     Dates: start: 1977
  9. PAXIL [Suspect]
     Active Substance: PAROXETINE HYDROCHLORIDE
     Indication: MANIA
     Dosage: UNK
     Route: 065
  10. LITHIUM CARBONATE. [Suspect]
     Active Substance: LITHIUM CARBONATE
     Indication: DEPRESSION
  11. VALPROIC ACID. [Suspect]
     Active Substance: VALPROIC ACID
     Indication: DEPRESSION

REACTIONS (64)
  - Spinal fracture [Unknown]
  - Electrolyte imbalance [Not Recovered/Not Resolved]
  - Accident [Not Recovered/Not Resolved]
  - Obsessive thoughts [Unknown]
  - Tendon injury [Not Recovered/Not Resolved]
  - Nasal septum disorder [Unknown]
  - Sciatica [Not Recovered/Not Resolved]
  - Heat exhaustion [Recovered/Resolved]
  - Suicide attempt [Not Recovered/Not Resolved]
  - Nerve injury [Not Recovered/Not Resolved]
  - Blood potassium abnormal [Not Recovered/Not Resolved]
  - Ill-defined disorder [Unknown]
  - Pain [Unknown]
  - Depressed level of consciousness [Recovered/Resolved]
  - Personality change [Unknown]
  - Intervertebral disc protrusion [Not Recovered/Not Resolved]
  - Thyroid disorder [Not Recovered/Not Resolved]
  - Overwork [Unknown]
  - Neurotransmitter level altered [Not Recovered/Not Resolved]
  - Feeling abnormal [Unknown]
  - Muscle spasms [Not Recovered/Not Resolved]
  - Diplegia [Not Recovered/Not Resolved]
  - Haemorrhage [Unknown]
  - Injury [Not Recovered/Not Resolved]
  - Limb injury [Unknown]
  - Muscle injury [Unknown]
  - Rib fracture [Not Recovered/Not Resolved]
  - Fractured coccyx [Unknown]
  - Violence-related symptom [Not Recovered/Not Resolved]
  - Brain injury [Unknown]
  - Altered state of consciousness [Recovered/Resolved]
  - Apparent life threatening event [Unknown]
  - Coma [Recovered/Resolved]
  - Abnormal behaviour [Recovered/Resolved]
  - Self esteem decreased [Not Recovered/Not Resolved]
  - Disturbance in social behaviour [Unknown]
  - Psychological trauma [Unknown]
  - Fractured sacrum [Unknown]
  - Brain injury [Not Recovered/Not Resolved]
  - Intervertebral disc injury [Not Recovered/Not Resolved]
  - Tardive dyskinesia [Not Recovered/Not Resolved]
  - Sedation [Unknown]
  - Derealisation [Recovered/Resolved]
  - Temporomandibular joint syndrome [Unknown]
  - Psychological abuse [Unknown]
  - Intervertebral disc protrusion [Not Recovered/Not Resolved]
  - Vertigo [Not Recovered/Not Resolved]
  - Fall [Unknown]
  - Nervous system disorder [Not Recovered/Not Resolved]
  - Blood sodium abnormal [Not Recovered/Not Resolved]
  - Psychiatric symptom [Unknown]
  - Cognitive disorder [Recovered/Resolved]
  - Negative thoughts [Unknown]
  - Neck injury [Not Recovered/Not Resolved]
  - Ligament injury [Unknown]
  - Joint injury [Not Recovered/Not Resolved]
  - Nervousness [Unknown]
  - Renal injury [Not Recovered/Not Resolved]
  - Epilepsy [Recovered/Resolved]
  - Suicidal ideation [Not Recovered/Not Resolved]
  - Hypoaesthesia [Not Recovered/Not Resolved]
  - Intentional overdose [Unknown]
  - Ligament injury [Not Recovered/Not Resolved]
  - Sensory disturbance [Unknown]

NARRATIVE: CASE EVENT DATE: 1972
